FAERS Safety Report 23686970 (Version 1)
Quarter: 2024Q1

REPORT INFORMATION
  Report Type: Spontaneous
  Country: DE (occurrence: DE)
  Receive Date: 20240329
  Receipt Date: 20240329
  Transmission Date: 20240410
  Serious: Yes (Other)
  Sender: FDA-Public Use
  Company Number: DE-SANDOZ-SDZ2024DE033418

PATIENT
  Age: 78 Year
  Sex: Female

DRUGS (1)
  1. OLANZAPINE [Suspect]
     Active Substance: OLANZAPINE
     Indication: Depression
     Dosage: UNK, QD, SINCE JANUARY
     Route: 065

REACTIONS (3)
  - Carcinoembryonic antigen increased [Unknown]
  - Carbohydrate antigen 19-9 increased [Unknown]
  - Hepatic enzyme increased [Unknown]
